FAERS Safety Report 6201856-2 (Version None)
Quarter: 2009Q2

REPORT INFORMATION
  Report Type: 
  Country: None (occurrence: None)
  Receive Date: 20090520
  Receipt Date: 20090512
  Transmission Date: 20091009
  Serious: Yes (Other)
  Sender: FDA-Public Use
  Company Number: 1000006211

PATIENT
  Age: 45 Year
  Sex: Female

DRUGS (4)
  1. LEXAPRO [Suspect]
     Indication: DEPRESSION
     Dosage: 20 MG, (20 MG, 1 IN 1 D), ORAL; 25 MG (25 MG, 1 IN 1 D), ORAL
     Route: 048
     Dates: start: 20030101, end: 20090201
  2. LEXAPRO [Suspect]
     Indication: DEPRESSION
     Dosage: 20 MG, (20 MG, 1 IN 1 D), ORAL; 25 MG (25 MG, 1 IN 1 D), ORAL
     Route: 048
     Dates: start: 20090201
  3. TAMOXIFEN CITRATE [Suspect]
     Indication: BREAST CANCER
     Dates: start: 20070101
  4. AMBIEN [Concomitant]

REACTIONS (3)
  - BREAST CANCER FEMALE [None]
  - HOT FLUSH [None]
  - OVERDOSE [None]
